FAERS Safety Report 9309523 (Version 1)
Quarter: 2013Q2

REPORT INFORMATION
  Report Type: Spontaneous
  Country: US (occurrence: US)
  Receive Date: 20130525
  Receipt Date: 20130525
  Transmission Date: 20140414
  Serious: Yes (Other)
  Sender: FDA-Public Use
  Company Number: US-BRISTOL-MYERS SQUIBB COMPANY-18584250

PATIENT
  Age: 76 Year
  Sex: Female
  Weight: 74.83 kg

DRUGS (15)
  1. BYDUREON 2MG VIAL + SYRINGE [Suspect]
     Indication: INSULIN-REQUIRING TYPE 2 DIABETES MELLITUS
     Route: 058
     Dates: start: 20130127
  2. BYETTA PEN DISPOSABLE [Suspect]
     Indication: INSULIN-REQUIRING TYPE 2 DIABETES MELLITUS
     Route: 058
     Dates: start: 2005
  3. BYETTA PEN DISPOSABLE [Suspect]
     Indication: INSULIN-REQUIRING TYPE 2 DIABETES MELLITUS
     Route: 058
     Dates: end: 20130126
  4. EXENATIDE [Suspect]
  5. EXENATIDE 10MCG PEN, DISPOSABLE DEVICE [Concomitant]
  6. GLUCOPHAGE [Concomitant]
     Indication: INSULIN-REQUIRING TYPE 2 DIABETES MELLITUS
     Route: 048
  7. GLIPIZIDE [Concomitant]
     Indication: INSULIN-REQUIRING TYPE 2 DIABETES MELLITUS
     Route: 048
  8. LEVEMIR [Concomitant]
     Indication: INSULIN-REQUIRING TYPE 2 DIABETES MELLITUS
     Route: 058
  9. BONIVA [Concomitant]
     Route: 058
  10. FENOFIBRATE [Concomitant]
     Route: 048
  11. ASPIRIN [Concomitant]
     Route: 048
  12. NEXIUM [Concomitant]
     Indication: GASTROOESOPHAGEAL REFLUX DISEASE
     Route: 048
     Dates: end: 20130122
  13. LOSARTAN POTASSIUM + HCTZ [Concomitant]
     Route: 048
  14. CIPROFLOXACIN [Concomitant]
     Indication: DIVERTICULITIS
     Route: 048
     Dates: start: 20130122
  15. FLAGYL [Concomitant]
     Indication: DIVERTICULITIS
     Route: 048
     Dates: start: 20130122

REACTIONS (14)
  - Cardiac flutter [Recovered/Resolved]
  - Urinary incontinence [Recovering/Resolving]
  - Blood glucose increased [Not Recovered/Not Resolved]
  - Gastroenteritis viral [Unknown]
  - Flank pain [Unknown]
  - Diverticulitis [Unknown]
  - Glycosylated haemoglobin increased [Unknown]
  - Weight decreased [Unknown]
  - Blood glucose decreased [Not Recovered/Not Resolved]
  - Tremor [Not Recovered/Not Resolved]
  - Nervousness [Not Recovered/Not Resolved]
  - Gastrooesophageal reflux disease [Not Recovered/Not Resolved]
  - Decreased appetite [Unknown]
  - Off label use [Not Recovered/Not Resolved]
